FAERS Safety Report 4903483-3 (Version None)
Quarter: 2006Q1

REPORT INFORMATION
  Report Type: 
  Country: None (occurrence: None)
  Receive Date: 20060208
  Receipt Date: 20060115
  Transmission Date: 20060701
  Serious: Yes (Death, Life-Threatening, Hospitalization, Disabling)
  Sender: FDA-Public Use
  Company Number: PE-BOEHRINGER INGELHEIM PHARMACEUTICALS, INC.-2006-BP-00439PE

PATIENT
  Sex: Male

DRUGS (1)
  1. SECOTEX CAPSULES [Suspect]
     Route: 048

REACTIONS (1)
  - DEATH [None]
